FAERS Safety Report 24123035 (Version 1)
Quarter: 2024Q3

REPORT INFORMATION
  Report Type: Spontaneous
  Country: GB (occurrence: GB)
  Receive Date: 20240723
  Receipt Date: 20240723
  Transmission Date: 20241017
  Serious: Yes (Other)
  Sender: AUROBINDO
  Company Number: GB-AUROBINDO-AUR-APL-2024-034673

PATIENT
  Age: 28 Year
  Sex: Male

DRUGS (4)
  1. BISOPROLOL [Suspect]
     Active Substance: BISOPROLOL\BISOPROLOL FUMARATE
     Indication: Arrhythmia supraventricular
     Dosage: 5 MILLIGRAM, ONCE A DAY
     Route: 065
  2. RAMIPRIL [Suspect]
     Active Substance: RAMIPRIL
     Indication: Arrhythmia supraventricular
     Dosage: 2.5 MILLIGRAM, ONCE A DAY
     Route: 065
  3. APIXABAN [Suspect]
     Active Substance: APIXABAN
     Indication: Arrhythmia supraventricular
     Dosage: 5 MILLIGRAM, TWO TIMES A DAY
     Route: 065
  4. AMIODARONE [Concomitant]
     Active Substance: AMIODARONE
     Indication: Arrhythmia supraventricular
     Dosage: 200 MILLIGRAM, ONCE A DAY
     Route: 048

REACTIONS (1)
  - Symptom recurrence [Recovered/Resolved]
